FAERS Safety Report 12983134 (Version 1)
Quarter: 2016Q4

REPORT INFORMATION
  Report Type: Spontaneous
  Country: US (occurrence: US)
  Receive Date: 20161129
  Receipt Date: 20161129
  Transmission Date: 20170207
  Serious: No
  Sender: FDA-Public Use
  Company Number: US-MALLINCKRODT-T201603257

PATIENT
  Sex: Male
  Weight: 91 kg

DRUGS (29)
  1. POTASSIUM CITRATE. [Concomitant]
     Active Substance: POTASSIUM CITRATE
     Dosage: 10 MEQ, TID
  2. MIRALAX [Concomitant]
     Active Substance: POLYETHYLENE GLYCOL 3350
     Dosage: 17 G, PRN
  3. CRANBERRY. [Concomitant]
     Active Substance: CRANBERRY
     Dosage: 500 MG, QD
  4. VITAMIN E [Concomitant]
     Active Substance: .ALPHA.-TOCOPHEROL
     Dosage: 400 IU, QD
  5. DULOXETINE. [Concomitant]
     Active Substance: DULOXETINE
     Dosage: 60 MG, QD
  6. AMLODIPINE [Concomitant]
     Active Substance: AMLODIPINE BESYLATE
     Dosage: 5 MG, QD
  7. OXYBUTYNIN [Concomitant]
     Active Substance: OXYBUTYNIN
     Dosage: 5 MG, TID PRN
  8. FLUTICASONE [Concomitant]
     Active Substance: FLUTICASONE\FLUTICASONE PROPIONATE
     Dosage: 2 SPRAYS EACH NOSTRIL QD
  9. COENZYME Q10 [Concomitant]
     Active Substance: UBIDECARENONE
     Dosage: QD
  10. STRESS B COMPLEX [Concomitant]
     Dosage: 1 DF, QD
  11. FENTANYL TRANSDERMAL SYSTEM [Suspect]
     Active Substance: FENTANYL
     Indication: NEURALGIA
     Dosage: 50 MCG/HR, Q3DAYS
     Route: 062
     Dates: start: 201602
  12. GABAPENTIN. [Concomitant]
     Active Substance: GABAPENTIN
     Dosage: 400 MG (3 TABLETS TID)
  13. MYCOPHENOLATE [Concomitant]
     Active Substance: MYCOPHENOLIC ACID
     Dosage: 500 MG (3 DF BID)
  14. VITAMIN B12 [Concomitant]
     Active Substance: CYANOCOBALAMIN
     Dosage: 1000 MEQ, QD
  15. TAMSULOSIN [Concomitant]
     Active Substance: TAMSULOSIN
     Dosage: 0.4 MG, QD
  16. DULCOLAX NOS [Concomitant]
     Active Substance: BISACODYL OR DOCUSATE SODIUM
     Dosage: 50 MG WITH SENNOSIDES 8.6 MG, 3 TABLETS HS
  17. VITAMIN B3 [Concomitant]
     Active Substance: NIACIN
     Dosage: 5000 IU, QD
  18. FISH OIL [Concomitant]
     Active Substance: FISH OIL
     Dosage: 1200 MG/360 MG OMEGA 3, 2 SOFTGELS QD
  19. FENTANYL TRANSDERMAL SYSTEM [Suspect]
     Active Substance: FENTANYL
     Dosage: 100 MCG/HR, Q3DAYS
     Route: 062
     Dates: start: 201602
  20. QUETIAPINE FUMARATE. [Concomitant]
     Active Substance: QUETIAPINE FUMARATE
     Dosage: 25 MG, BID
  21. METOPROLOL. [Concomitant]
     Active Substance: METOPROLOL
     Dosage: 50 MG, 1/2 TAB BID
  22. NITROGLYCERIN ABCUR [Concomitant]
     Dosage: 0.4 PRN
     Route: 060
  23. VENLAFAXINE [Concomitant]
     Active Substance: VENLAFAXINE HYDROCHLORIDE
     Dosage: 750 MG, QD
  24. ASPIRIN 81 [Concomitant]
     Active Substance: ASPIRIN
     Dosage: 81 MG, QD
  25. BISCOLAX [Concomitant]
     Active Substance: BISACODYL
     Dosage: PRN
  26. METHENAMINE HIPPURATE. [Concomitant]
     Active Substance: METHENAMINE HIPPURATE
     Dosage: 1 G, BID WITH MEALS
  27. VITAMIN C [Concomitant]
     Active Substance: ASCORBIC ACID
  28. CYCLOBENZAPRINE [Concomitant]
     Active Substance: CYCLOBENZAPRINE
     Dosage: 10 MG, TID
  29. CENTRUM SILVER [Concomitant]
     Active Substance: MINERALS\VITAMINS
     Dosage: QD

REACTIONS (4)
  - Drug effect incomplete [Not Recovered/Not Resolved]
  - Drug withdrawal syndrome [Not Recovered/Not Resolved]
  - Wrong technique in product usage process [Not Recovered/Not Resolved]
  - Product adhesion issue [Not Recovered/Not Resolved]

NARRATIVE: CASE EVENT DATE: 2016
